FAERS Safety Report 20393804 (Version 3)
Quarter: 2022Q2

REPORT INFORMATION
  Report Type: Report from Study
  Country: US (occurrence: US)
  Receive Date: 20220128
  Receipt Date: 20220503
  Transmission Date: 20220721
  Serious: Yes (Hospitalization, Other)
  Sender: FDA-Public Use
  Company Number: US-ALXN-A202200922

PATIENT
  Sex: Male

DRUGS (3)
  1. ULTOMIRIS [Suspect]
     Active Substance: RAVULIZUMAB-CWVZ
     Indication: Paroxysmal nocturnal haemoglobinuria
     Dosage: UNK
     Route: 042
     Dates: start: 20190305
  2. ULTOMIRIS [Suspect]
     Active Substance: RAVULIZUMAB-CWVZ
     Dosage: UNK
     Route: 065
     Dates: start: 20220124
  3. ULTOMIRIS [Suspect]
     Active Substance: RAVULIZUMAB-CWVZ
     Dosage: UNK
     Route: 065
     Dates: end: 20211102

REACTIONS (1)
  - Meningitis [Unknown]
